FAERS Safety Report 13472156 (Version 1)
Quarter: 2017Q2

REPORT INFORMATION
  Report Type: Spontaneous
  Country: US (occurrence: US)
  Receive Date: 20170424
  Receipt Date: 20170424
  Transmission Date: 20170830
  Serious: No
  Sender: FDA-Public Use
  Company Number: None

PATIENT
  Age: 5 Year
  Sex: Female

DRUGS (1)
  1. ALBUTEIN [Suspect]
     Active Substance: ALBUMIN HUMAN
     Indication: SURGERY
     Dosage: CONTINUOUS DURING PROCEDURE ONCE IV
     Route: 042
     Dates: start: 20170413

REACTIONS (3)
  - Product contamination physical [None]
  - Product contamination with body fluid [None]
  - Contraindicated product administered [None]

NARRATIVE: CASE EVENT DATE: 20170413
